FAERS Safety Report 7210260-X (Version None)
Quarter: 2011Q1

REPORT INFORMATION
  Report Type: 
  Country: None (occurrence: None)
  Receive Date: 20110105
  Receipt Date: 20101230
  Transmission Date: 20110831
  Serious: Yes (Life-Threatening)
  Sender: FDA-Public Use
  Company Number: TW-CELGENEUS-153-50794-10121945

PATIENT
  Age: 65 Year
  Sex: Female
  Weight: 90 kg

DRUGS (1)
  1. VIDAZA [Suspect]
     Route: 050

REACTIONS (4)
  - BACTERIAL SEPSIS [None]
  - NAUSEA [None]
  - VOMITING [None]
  - VISION BLURRED [None]
